FAERS Safety Report 4841330-9 (Version None)
Quarter: 2005Q4

REPORT INFORMATION
  Report Type: 
  Country: None (occurrence: None)
  Receive Date: 20051130
  Receipt Date: 20051123
  Transmission Date: 20060501
  Serious: Yes (Other)
  Sender: FDA-Public Use
  Company Number: NL-GLAXOSMITHKLINE-B0401694A

PATIENT
  Sex: Female

DRUGS (4)
  1. ROPINIROLE HCL [Suspect]
     Indication: PARKINSON'S DISEASE
  2. INSULIN [Concomitant]
  3. ATENOLOLUM [Concomitant]
  4. ENALAPRIL [Concomitant]

REACTIONS (2)
  - ANGIONEUROTIC OEDEMA [None]
  - HYPERSENSITIVITY [None]
